FAERS Safety Report 9560871 (Version 1)
Quarter: 2013Q2

REPORT INFORMATION
  Report Type: Spontaneous
  Country: FR (occurrence: None)
  Receive Date: 20130403
  Receipt Date: 20130403
  Transmission Date: 20140414
  Serious: Yes (Death, Hospitalization)
  Sender: FDA-Public Use
  Company Number: US-2012-11318

PATIENT
  Age: 36 Year
  Sex: Male
  Weight: 70 kg

DRUGS (10)
  1. BUSULFEX (BUSULFAN) INJECTION [Suspect]
     Indication: ACUTE MYELOID LEUKAEMIA
     Dosage: (1/DAY)
     Route: 042
     Dates: start: 20111116, end: 20111119
  2. CYCLOPHOSPHAMIDE (CYCLOPHOSPHAMIDE) [Suspect]
     Indication: ACUTE MYELOID LEUKAEMIA
     Dosage: CYCLICAL (1/21)
     Route: 042
     Dates: start: 20111121, end: 20111122
  3. DETURGYLONE (PREDNAZOLINE) [Concomitant]
  4. HYDROCORTISONE (HYDROCORTISONE ACETATE) [Concomitant]
  5. EUPANTOL (PANTOPRAZOLE SODIUM) [Concomitant]
  6. LEDERFOLIN (CALCIUM FOLINATE) [Concomitant]
  7. AZITHROMYCIN (AZITHROMYCIN) [Concomitant]
  8. LOVENOX (ENOXAPARIN SODIUM) [Concomitant]
  9. POSACONAZOLE (POSACONAZOLE) [Concomitant]
  10. ROCEPHINE (CEFTRIAXONE SODIUM) [Concomitant]

REACTIONS (1)
  - Pulmonary fibrosis [None]
